FAERS Safety Report 5187750-7 (Version None)
Quarter: 2006Q4

REPORT INFORMATION
  Report Type: 
  Country: None (occurrence: None)
  Receive Date: 20061221
  Receipt Date: 20061215
  Transmission Date: 20070319
  Serious: Yes (Life-Threatening)
  Sender: FDA-Public Use
  Company Number: GB-JNJFOC-20061204553

PATIENT
  Age: 46 Year
  Sex: Female

DRUGS (19)
  1. FENTANYL [Suspect]
     Indication: GENERAL ANAESTHESIA
     Route: 065
  2. AMOXICILLIN [Suspect]
     Indication: DRUG USE FOR UNKNOWN INDICATION
     Route: 065
  3. DICLOFENAC SODIUM [Suspect]
     Indication: DRUG USE FOR UNKNOWN INDICATION
     Route: 042
  4. EPHEDRINE [Suspect]
     Indication: HYPOTENSION
     Route: 065
  5. GLYCOPYRROLATE [Suspect]
     Indication: DRUG USE FOR UNKNOWN INDICATION
     Route: 065
  6. ISOFLURANE [Suspect]
     Indication: GENERAL ANAESTHESIA
     Route: 065
  7. MORPHINE [Suspect]
     Indication: GENERAL ANAESTHESIA
     Route: 065
  8. NEOSTIGMINE [Suspect]
     Indication: DRUG USE FOR UNKNOWN INDICATION
     Route: 065
  9. NITROUS OXIDE W/ OXYGEN [Suspect]
     Indication: GENERAL ANAESTHESIA
     Route: 065
  10. OXYGEN [Suspect]
     Indication: GENERAL ANAESTHESIA
     Route: 065
  11. OXYGEN [Suspect]
     Indication: TACHYCARDIA
     Route: 065
  12. ONDANSETRON HCL [Suspect]
     Indication: DRUG USE FOR UNKNOWN INDICATION
     Route: 065
  13. PROPOFOL [Suspect]
     Indication: GENERAL ANAESTHESIA
     Route: 065
  14. VECURONIUM BROMIDE [Suspect]
     Indication: GENERAL ANAESTHESIA
     Route: 065
  15. DIAZEPAM [Concomitant]
     Route: 065
  16. ESCITALOPRAM OXALATE [Concomitant]
     Route: 065
  17. NORETHINDRONE ACETATE [Concomitant]
     Route: 065
  18. ZOLPIDEM TARTRATE [Concomitant]
     Route: 065
  19. CO-DYDRAMOL [Concomitant]
     Route: 065

REACTIONS (3)
  - ABDOMINAL DISTENSION [None]
  - ACUTE HEPATIC FAILURE [None]
  - TACHYCARDIA [None]
